FAERS Safety Report 23037887 (Version 1)
Quarter: 2023Q4

REPORT INFORMATION
  Report Type: Spontaneous
  Country: US (occurrence: US)
  Receive Date: 20231006
  Receipt Date: 20231006
  Transmission Date: 20240110
  Serious: No
  Sender: FDA-Public Use
  Company Number: US-ViiV Healthcare Limited-101680

PATIENT
  Sex: Male

DRUGS (4)
  1. CABENUVA [Suspect]
     Active Substance: CABOTEGRAVIR\RILPIVIRINE
     Indication: Product used for unknown indication
     Dosage: UNK 600/900
     Route: 030
     Dates: start: 2023
  2. CABENUVA [Suspect]
     Active Substance: CABOTEGRAVIR\RILPIVIRINE
  3. CABENUVA [Suspect]
     Active Substance: CABOTEGRAVIR\RILPIVIRINE
  4. LORAZEPAM [Concomitant]
     Active Substance: LORAZEPAM
     Indication: Product used for unknown indication
     Dosage: UNK

REACTIONS (10)
  - Sciatica [Unknown]
  - Back pain [Unknown]
  - Lethargy [Unknown]
  - Depression [Unknown]
  - Anxiety [Unknown]
  - Dyspnoea [Unknown]
  - Feeling abnormal [Unknown]
  - Apathy [Unknown]
  - Arthralgia [Unknown]
  - Fatigue [Unknown]

NARRATIVE: CASE EVENT DATE: 20230101
